FAERS Safety Report 26175582 (Version 1)
Quarter: 2025Q4

REPORT INFORMATION
  Report Type: Report from Study
  Country: US (occurrence: US)
  Receive Date: 20251218
  Receipt Date: 20251218
  Transmission Date: 20260117
  Serious: Yes (Other)
  Sender: ABBVIE
  Company Number: US-JNJFOC-20251214323

PATIENT

DRUGS (1)
  1. IBRUTINIB [Suspect]
     Active Substance: IBRUTINIB
     Indication: Chronic lymphocytic leukaemia
     Route: 048

REACTIONS (39)
  - Blood loss anaemia [Unknown]
  - Petechiae [Unknown]
  - Vessel puncture site bruise [Unknown]
  - Ecchymosis [Unknown]
  - Genital contusion [Unknown]
  - Oral blood blister [Unknown]
  - Aortic rupture [Unknown]
  - Infection [Unknown]
  - COVID-19 [Unknown]
  - Increased tendency to bruise [Unknown]
  - Haemorrhage [Unknown]
  - Anaemia [Unknown]
  - Nail bed bleeding [Unknown]
  - Atrial fibrillation [Unknown]
  - Contusion [Unknown]
  - Oral contusion [Unknown]
  - Neutrophil count decreased [Unknown]
  - Platelet count decreased [Unknown]
  - Thrombocytopenia [Unknown]
  - Atrial flutter [Unknown]
  - Hypertension [Unknown]
  - Upper respiratory tract infection [Unknown]
  - Coital bleeding [Unknown]
  - Iron deficiency anaemia [Unknown]
  - Haematospermia [Unknown]
  - Diarrhoea [Unknown]
  - Contusion [Unknown]
  - Epistaxis [Unknown]
  - Arthralgia [Unknown]
  - Purpura [Unknown]
  - Pneumonia [Unknown]
  - Gingival bleeding [Unknown]
  - Febrile neutropenia [Unknown]
  - Urinary tract infection [Unknown]
  - Injection site bruising [Unknown]
  - Haematuria [Unknown]
  - Haematoma [Unknown]
  - Microcytic anaemia [Unknown]
  - Neutropenia [Unknown]
